FAERS Safety Report 5817467-4 (Version None)
Quarter: 2008Q3

REPORT INFORMATION
  Report Type: 
  Country: None (occurrence: None)
  Receive Date: 20080715
  Receipt Date: 20080704
  Transmission Date: 20090109
  Serious: Yes (Hospitalization)
  Sender: FDA-Public Use
  Company Number: 2008-02474

PATIENT

DRUGS (6)
  1. VELCADE [Suspect]
     Indication: MULTIPLE MYELOMA
     Dosage: INTRAVENOUS
     Route: 042
     Dates: start: 20070801, end: 20080104
  2. DURAGESIC-100 [Concomitant]
  3. ESOMEPRAZOLE MAGNESIUM [Concomitant]
  4. VALACYCLOVIR HCL [Concomitant]
  5. BACTRIM [Concomitant]
  6. PYOSTACINE (PRISTINAMYCIN) [Concomitant]

REACTIONS (1)
  - RASH VESICULAR [None]
